FAERS Safety Report 23146167 (Version 2)
Quarter: 2023Q4

REPORT INFORMATION
  Report Type: Report from Study
  Country: MX (occurrence: MX)
  Receive Date: 20231104
  Receipt Date: 20231201
  Transmission Date: 20240110
  Serious: Yes (Hospitalization)
  Sender: FDA-Public Use
  Company Number: MX-002147023-NVSC2023MX235098

PATIENT
  Age: 59 Year
  Sex: Female
  Weight: 68 kg

DRUGS (2)
  1. TASIGNA [Suspect]
     Active Substance: NILOTINIB
     Indication: Chronic myeloid leukaemia
     Dosage: UNK
     Route: 048
  2. TASIGNA [Suspect]
     Active Substance: NILOTINIB
     Dosage: 400 MG, BID (TWICE A DAY)
     Route: 048
     Dates: start: 20201129, end: 20231127

REACTIONS (2)
  - Toxicity to various agents [Unknown]
  - Therapeutic response decreased [Unknown]

NARRATIVE: CASE EVENT DATE: 20221129
